FAERS Safety Report 6738960-6 (Version None)
Quarter: 2010Q2

REPORT INFORMATION
  Report Type: 
  Country: None (occurrence: None)
  Receive Date: 20100521
  Receipt Date: 20100512
  Transmission Date: 20101027
  Serious: Yes (Hospitalization)
  Sender: FDA-Public Use
  Company Number: US-000257

PATIENT
  Sex: Male

DRUGS (1)
  1. KUVAN [Suspect]
     Indication: PHENYLKETONURIA
     Dosage: (ORAL)
     Route: 048

REACTIONS (1)
  - RESPIRATORY TRACT INFECTION [None]
